FAERS Safety Report 9984099 (Version 1)
Quarter: 2014Q1

REPORT INFORMATION
  Report Type: Report from Study
  Country: US (occurrence: US)
  Receive Date: 20140307
  Receipt Date: 20140307
  Transmission Date: 20141002
  Serious: No
  Sender: FDA-Public Use
  Company Number: US-ABBVIE-13P-163-1183431-00

PATIENT
  Sex: Female

DRUGS (18)
  1. HUMIRA [Suspect]
     Indication: RHEUMATOID ARTHRITIS
     Dates: start: 20131105
  2. METHOTREXATE [Concomitant]
     Indication: RHEUMATOID ARTHRITIS
     Dosage: EVERY TUESDAY
  3. FOLIC ACID [Concomitant]
     Indication: PRODUCT USED FOR UNKNOWN INDICATION
     Dosage: EVERY MORNING
  4. POTASSIUM CL [Concomitant]
     Indication: CARDIOVASCULAR DISORDER
     Dosage: IN MORNING, IN CONCJUCTION WITH FUROSEMIDE USE
  5. POTASSIUM CL [Concomitant]
     Indication: LOCAL SWELLING
  6. FUROSEMIDE [Concomitant]
     Indication: CARDIOVASCULAR DISORDER
     Dosage: IN MORNING
  7. FUROSEMIDE [Concomitant]
     Indication: LOCAL SWELLING
  8. LEVOTHYROXINE [Concomitant]
     Indication: HYPERTHYROIDISM
     Dosage: IN MORNING
  9. SIMVASTATIN [Concomitant]
     Indication: BLOOD CHOLESTEROL INCREASED
     Dosage: AT NIGHT
  10. GABAPENTIN [Concomitant]
     Indication: NEUROPATHY PERIPHERAL
  11. CYMBALTA [Concomitant]
     Indication: PRODUCT USED FOR UNKNOWN INDICATION
  12. OMEPRAZOLE [Concomitant]
     Indication: GASTRIC DISORDER
     Dosage: IN MORNING
  13. AMBIEN [Concomitant]
     Indication: INSOMNIA
     Dosage: BEDTIME
  14. FLEXERIL [Concomitant]
     Indication: BACK PAIN
  15. FLEXERIL [Concomitant]
     Indication: MUSCULOSKELETAL DISCOMFORT
  16. VICODIN [Concomitant]
     Indication: PAIN
     Dosage: AS NEEDED
  17. LISINOPRIL [Concomitant]
     Indication: BLOOD CHOLESTEROL ABNORMAL
  18. CELEBREX [Concomitant]
     Indication: RHEUMATOID ARTHRITIS

REACTIONS (2)
  - Inappropriate schedule of drug administration [Unknown]
  - Mouth ulceration [Not Recovered/Not Resolved]
